FAERS Safety Report 6678088-7 (Version None)
Quarter: 2010Q2

REPORT INFORMATION
  Report Type: 
  Country: None (occurrence: None)
  Receive Date: 20100412
  Receipt Date: 20100401
  Transmission Date: 20101027
  Serious: Yes (Other)
  Sender: FDA-Public Use
  Company Number: JP-AMGEN-KDC404725

PATIENT
  Sex: Male

DRUGS (4)
  1. CINACALCET HYDROCHLORIDE [Suspect]
     Indication: HYPERPARATHYROIDISM SECONDARY
     Route: 048
     Dates: start: 20090721, end: 20090820
  2. ROCALTROL [Concomitant]
     Route: 048
  3. CALCIUM CARBONATE [Concomitant]
     Route: 048
  4. FOSRENOL [Concomitant]

REACTIONS (1)
  - CONSTIPATION [None]
